FAERS Safety Report 21812750 (Version 1)
Quarter: 2022Q4

REPORT INFORMATION
  Report Type: Spontaneous
  Country: US (occurrence: None)
  Receive Date: 20221231
  Receipt Date: 20221231
  Transmission Date: 20230113
  Serious: Yes (Disabling)
  Sender: FDA-Public Use
  Company Number: None

PATIENT
  Age: 41 Year
  Sex: Female
  Weight: 54.9 kg

DRUGS (2)
  1. SPIRONOLACTONE [Suspect]
     Active Substance: SPIRONOLACTONE
     Indication: Acne
     Dates: start: 20220401
  2. SPIRONOLACTONE [Suspect]
     Active Substance: SPIRONOLACTONE
     Indication: Alopecia

REACTIONS (7)
  - Polymenorrhoea [None]
  - Libido decreased [None]
  - Vulvovaginal dryness [None]
  - Vaginal haemorrhage [None]
  - Atrophic vulvovaginitis [None]
  - Nonspecific reaction [None]
  - Impaired quality of life [None]

NARRATIVE: CASE EVENT DATE: 20220829
